FAERS Safety Report 7379301-3 (Version None)
Quarter: 2011Q1

REPORT INFORMATION
  Report Type: 
  Country: None (occurrence: None)
  Receive Date: 20110329
  Receipt Date: 20110321
  Transmission Date: 20110831
  Serious: Yes (Hospitalization)
  Sender: FDA-Public Use
  Company Number: US-BIOGENIDEC-2011BI000837

PATIENT
  Age: 56 Year
  Sex: Female

DRUGS (7)
  1. NAPROXEN [Concomitant]
     Indication: ARTHRALGIA
  2. SEROQUEL [Concomitant]
     Indication: SCHIZOPHRENIA
  3. HYDROCHLOROTHIAZIDE [Concomitant]
     Indication: HYPERTENSION
  4. LANOXIN [Concomitant]
     Indication: HYPERTENSION
  5. AVONEX [Suspect]
     Indication: MULTIPLE SCLEROSIS
     Route: 030
     Dates: start: 20101204, end: 20110101
  6. ACCUPRIL [Concomitant]
     Indication: HYPERTENSION
  7. SYMBICORT [Concomitant]
     Indication: ASTHMA
     Route: 055

REACTIONS (3)
  - CEREBROVASCULAR ACCIDENT [None]
  - MUSCULAR WEAKNESS [None]
  - BLOOD GLUCOSE INCREASED [None]
